FAERS Safety Report 6124984-9 (Version None)
Quarter: 2009Q1

REPORT INFORMATION
  Report Type: 
  Country: None (occurrence: None)
  Receive Date: 20090319
  Receipt Date: 20090310
  Transmission Date: 20090719
  Serious: Yes (Other)
  Sender: FDA-Public Use
  Company Number: US-AMGEN-QUU336563

PATIENT
  Sex: Female
  Weight: 50.8 kg

DRUGS (2)
  1. NEULASTA [Suspect]
     Indication: CHEMOTHERAPY
     Route: 058
     Dates: start: 20080918, end: 20090107
  2. UNSPECIFIED ANTINEOPLASTIC AGENT [Concomitant]
     Dates: start: 20080918, end: 20090105

REACTIONS (6)
  - ARTHRALGIA [None]
  - BONE PAIN [None]
  - ILLOGICAL THINKING [None]
  - LOCAL SWELLING [None]
  - MYALGIA [None]
  - SWELLING FACE [None]
